FAERS Safety Report 6512386-2 (Version None)
Quarter: 2009Q4

REPORT INFORMATION
  Report Type: 
  Country: None (occurrence: None)
  Receive Date: 20091222
  Receipt Date: 20091216
  Transmission Date: 20100525
  Serious: Yes (Death)
  Sender: FDA-Public Use
  Company Number: ES-ELI_LILLY_AND_COMPANY-ES200912003970

PATIENT
  Age: 97 Year
  Sex: Female

DRUGS (4)
  1. FORTEO [Suspect]
     Indication: OSTEOPOROSIS
     Dosage: 20 UG, DAILY (1/D)
     Route: 058
     Dates: start: 20081212, end: 20091208
  2. TARDYFERON [Concomitant]
     Indication: ANAEMIA
  3. PARACETAMOL [Concomitant]
     Indication: PAIN
  4. FUROSEMIDA /00032602/ [Concomitant]
     Indication: URINARY TRACT DISORDER

REACTIONS (1)
  - MYOCARDIAL INFARCTION [None]
